FAERS Safety Report 9215314 (Version 1)
Quarter: 2013Q2

REPORT INFORMATION
  Report Type: Spontaneous
  Country: US (occurrence: US)
  Receive Date: 20130405
  Receipt Date: 20130405
  Transmission Date: 20140414
  Serious: Yes (Hospitalization, Disabling, Other)
  Sender: FDA-Public Use
  Company Number: US-009507513-1201USA00238

PATIENT
  Sex: Female
  Weight: 72.58 kg

DRUGS (7)
  1. FOSAMAX [Suspect]
     Indication: OSTEOPOROSIS
     Dosage: 70 MG, QW
     Route: 048
     Dates: start: 20040506, end: 20070416
  2. FOSAMAX PLUS D [Suspect]
     Indication: OSTEOPOROSIS
     Dosage: 70 MG, QW
     Route: 048
     Dates: start: 20060407
  3. CALCIUM (UNSPECIFIED) [Concomitant]
     Dosage: TO PRESENT
     Route: 048
     Dates: start: 1997
  4. LYSINE [Concomitant]
     Dosage: TO PRESENT
     Dates: start: 1997
  5. CENTRUM (MINERALS (UNSPECIFIED) (+) VITAMINS (UNSPECIFIED)) [Concomitant]
     Dosage: TO PRESENT
     Dates: start: 1997
  6. VITAMIN B COMPLEX [Concomitant]
     Dosage: TO PRESENT
     Dates: start: 1997
  7. CHOLECALCIFEROL [Concomitant]
     Dosage: TO PRESENT
     Dates: start: 1997

REACTIONS (21)
  - Low turnover osteopathy [Not Recovered/Not Resolved]
  - Femur fracture [Not Recovered/Not Resolved]
  - Fracture [Unknown]
  - Femur fracture [Not Recovered/Not Resolved]
  - Impaired healing [Unknown]
  - Gingival disorder [Unknown]
  - Oral disorder [Unknown]
  - Oral disorder [Unknown]
  - Depression [Unknown]
  - Anxiety [Unknown]
  - Arthritis [Unknown]
  - Fall [Unknown]
  - Scoliosis [Unknown]
  - Hypertriglyceridaemia [Unknown]
  - Blood cholesterol increased [Unknown]
  - Migraine [Unknown]
  - Anaemia [Unknown]
  - Rotator cuff syndrome [Unknown]
  - Balance disorder [Unknown]
  - Back pain [Unknown]
  - Constipation [Unknown]
